FAERS Safety Report 26194160 (Version 1)
Quarter: 2025Q4

REPORT INFORMATION
  Report Type: Spontaneous
  Country: US (occurrence: US)
  Receive Date: 20251224
  Receipt Date: 20251224
  Transmission Date: 20260118
  Serious: No
  Sender: ROCHE
  Company Number: US-ROCHE-10000460066

PATIENT
  Age: 71 Year
  Sex: Male
  Weight: 105.23 kg

DRUGS (3)
  1. ACTEMRA [Suspect]
     Active Substance: TOCILIZUMAB
     Indication: Arteritis
     Dates: start: 20251117
  2. PREDNISONE [Concomitant]
     Active Substance: PREDNISONE
     Indication: Arteritis
     Dosage: SEE ADDITIONAL INFORMATION
     Dates: start: 20251125
  3. IRON [Concomitant]
     Active Substance: IRON
     Indication: Iron deficiency

REACTIONS (4)
  - Off label use [Unknown]
  - Wrong technique in device usage process [Unknown]
  - C-reactive protein increased [Unknown]
  - Red blood cell sedimentation rate increased [Unknown]

NARRATIVE: CASE EVENT DATE: 20251117
